FAERS Safety Report 7157184-4 (Version None)
Quarter: 2010Q4

REPORT INFORMATION
  Report Type: 
  Country: None (occurrence: None)
  Receive Date: 20101214
  Receipt Date: 20091221
  Transmission Date: 20110411
  Serious: No
  Sender: FDA-Public Use
  Company Number: US-ASTRAZENECA-2009SE32839

PATIENT
  Sex: Male
  Weight: 154.2 kg

DRUGS (3)
  1. CRESTOR [Suspect]
     Route: 048
     Dates: end: 20091201
  2. TERAZOSIN HCL [Concomitant]
  3. FUROSEMIDE [Concomitant]

REACTIONS (2)
  - GAIT DISTURBANCE [None]
  - PAIN IN EXTREMITY [None]
